FAERS Safety Report 24781038 (Version 1)
Quarter: 2024Q4

REPORT INFORMATION
  Report Type: Spontaneous
  Country: CN (occurrence: CN)
  Receive Date: 20241227
  Receipt Date: 20241227
  Transmission Date: 20250115
  Serious: Yes (Other)
  Sender: TAKEDA
  Company Number: CN-LUNDBECK-DKLU4008322

PATIENT
  Age: 46 Year
  Sex: Male

DRUGS (6)
  1. VORTIOXETINE [Suspect]
     Active Substance: VORTIOXETINE
     Indication: Psychotic symptom
     Dosage: 20 MILLIGRAM, QD
     Dates: start: 20241116, end: 20241217
  2. VORTIOXETINE [Suspect]
     Active Substance: VORTIOXETINE
     Indication: Depression
  3. OLANZAPINE [Suspect]
     Active Substance: OLANZAPINE
     Indication: Psychotic symptom
     Dosage: 7.5 MILLIGRAM, BID
     Dates: start: 20241116, end: 20241128
  4. OLANZAPINE [Suspect]
     Active Substance: OLANZAPINE
     Indication: Depression
  5. OLANZAPINE [Suspect]
     Active Substance: OLANZAPINE
     Indication: Psychotic symptom
     Dosage: 7.5 MILLIGRAM, BID
     Dates: start: 20241129, end: 20241211
  6. OLANZAPINE [Suspect]
     Active Substance: OLANZAPINE
     Indication: Depression

REACTIONS (1)
  - Alanine aminotransferase increased [Unknown]

NARRATIVE: CASE EVENT DATE: 20241211
